FAERS Safety Report 21462711 (Version 1)
Quarter: 2022Q4

REPORT INFORMATION
  Report Type: Spontaneous
  Country: US (occurrence: US)
  Receive Date: 20221017
  Receipt Date: 20221017
  Transmission Date: 20230113
  Serious: No
  Sender: FDA-Public Use
  Company Number: US-STRIDES ARCOLAB LIMITED-2022SP005378

PATIENT
  Age: 16 Year
  Sex: Female

DRUGS (18)
  1. METOCLOPRAMIDE [Suspect]
     Active Substance: METOCLOPRAMIDE
     Indication: Nausea
     Dosage: UNK, PRN, AS NEEDED
     Route: 065
  2. METOCLOPRAMIDE [Suspect]
     Active Substance: METOCLOPRAMIDE
     Indication: Vomiting
  3. ACETAMINOPHEN [Suspect]
     Active Substance: ACETAMINOPHEN
     Indication: Headache
     Dosage: UNK, PRN, AS NEEDED
     Route: 065
  4. ACETAMINOPHEN [Suspect]
     Active Substance: ACETAMINOPHEN
     Indication: Vomiting
  5. ACETAMINOPHEN [Suspect]
     Active Substance: ACETAMINOPHEN
     Indication: Nausea
  6. ONDANSETRON [Suspect]
     Active Substance: ONDANSETRON
     Indication: Nausea
     Dosage: UNK
     Route: 065
  7. ONDANSETRON [Suspect]
     Active Substance: ONDANSETRON
     Indication: Vomiting
  8. DIPHENHYDRAMINE [Suspect]
     Active Substance: DIPHENHYDRAMINE
     Indication: Swollen tongue
     Dosage: UNK
     Route: 065
  9. ESCITALOPRAM [Suspect]
     Active Substance: ESCITALOPRAM OXALATE
     Indication: Depression
     Dosage: UNK
     Route: 065
  10. ESCITALOPRAM [Suspect]
     Active Substance: ESCITALOPRAM OXALATE
     Indication: Anxiety
  11. ALBUTEROL [Suspect]
     Active Substance: ALBUTEROL
     Indication: Pre-eclampsia
     Dosage: UNK
     Route: 065
  12. ALBUTEROL [Suspect]
     Active Substance: ALBUTEROL
     Indication: Prophylaxis
  13. ASPIRIN [Suspect]
     Active Substance: ASPIRIN
     Indication: Pre-eclampsia
     Dosage: 81 MILLIGRAM,PER DAY
     Route: 065
  14. ASPIRIN [Suspect]
     Active Substance: ASPIRIN
     Indication: Prophylaxis
  15. PIPERACILLIN SODIUM\TAZOBACTAM SODIUM [Suspect]
     Active Substance: PIPERACILLIN SODIUM\TAZOBACTAM SODIUM
     Indication: COVID-19
     Dosage: UNK
     Route: 065
  16. TOCILIZUMAB [Suspect]
     Active Substance: TOCILIZUMAB
     Indication: COVID-19
     Dosage: UNK
     Route: 065
  17. REMDESIVIR [Suspect]
     Active Substance: REMDESIVIR
     Indication: COVID-19
     Dosage: UNK
     Route: 065
  18. PYRIDOSTIGMINE [Suspect]
     Active Substance: PYRIDOSTIGMINE
     Indication: Myasthenia gravis crisis
     Dosage: UNK
     Route: 065

REACTIONS (1)
  - Maternal exposure during pregnancy [Unknown]
